FAERS Safety Report 14674221 (Version 1)
Quarter: 2018Q1

REPORT INFORMATION
  Report Type: Spontaneous
  Country: US (occurrence: US)
  Receive Date: 20180323
  Receipt Date: 20180323
  Transmission Date: 20180509
  Serious: No
  Sender: FDA-Public Use
  Company Number: US-PERRIGO-18US002157

PATIENT
  Age: 81 Year
  Sex: Female
  Weight: 72.56 kg

DRUGS (6)
  1. ANTIHYPERTENSIVES [Concomitant]
     Active Substance: UNSPECIFIED INGREDIENT
     Indication: HYPERTENSION
     Dosage: UNKNOWN, UNKNOWN
     Route: 065
  2. ANTIGOUT PREPARATIONS [Suspect]
     Active Substance: UNSPECIFIED INGREDIENT
     Indication: GOUT
     Dosage: UNK
     Route: 065
  3. OTHER RESPIRATORY SYSTEM PRODUCTS [Suspect]
     Active Substance: UNSPECIFIED INGREDIENT
     Indication: CHRONIC OBSTRUCTIVE PULMONARY DISEASE
     Dosage: UNK
     Route: 065
  4. ACETAMINOPHEN. [Suspect]
     Active Substance: ACETAMINOPHEN
     Indication: ARTHRITIS
     Dosage: 1300 MG, SINGLE
     Route: 048
     Dates: start: 20180218, end: 20180218
  5. ANTIARRHYTHMIC AGENTS [Suspect]
     Active Substance: UNSPECIFIED INGREDIENT
     Indication: ATRIAL FIBRILLATION
     Dosage: UNK
     Route: 065
  6. ANTI-DEMENTIA DRUGS [Suspect]
     Active Substance: UNSPECIFIED INGREDIENT
     Indication: DEMENTIA
     Dosage: UNK
     Route: 065

REACTIONS (1)
  - Drug ineffective [Unknown]

NARRATIVE: CASE EVENT DATE: 20180218
